FAERS Safety Report 8604339-5 (Version None)
Quarter: 2012Q3

REPORT INFORMATION
  Report Type: 
  Country: None (occurrence: None)
  Receive Date: 20120808
  Receipt Date: 20120808
  Transmission Date: 20120928
  Serious: Yes (Other)
  Sender: FDA-Public Use
  Company Number: None

PATIENT
  Age: 51 Year
  Sex: Male
  Weight: 75.9 kg

DRUGS (8)
  1. FINASTERIDE [Concomitant]
  2. SIMVASTATIN [Suspect]
     Indication: BLOOD CHOLESTEROL INCREASED
     Dates: start: 20120708, end: 20120712
  3. DEXILANT [Concomitant]
  4. SINGULAIR [Concomitant]
  5. DIAZEPAM [Concomitant]
  6. UROXATRAL [Concomitant]
  7. FEXOFENADINE [Concomitant]
  8. LORTAB [Concomitant]

REACTIONS (7)
  - RESPIRATORY RATE INCREASED [None]
  - DRUG INTERACTION [None]
  - SOMNOLENCE [None]
  - MYALGIA [None]
  - HYPERHIDROSIS [None]
  - FATIGUE [None]
  - HOT FLUSH [None]
